FAERS Safety Report 4619267-X (Version None)
Quarter: 2005Q1

REPORT INFORMATION
  Report Type: 
  Country: None (occurrence: None)
  Receive Date: 20050325
  Receipt Date: 20050314
  Transmission Date: 20050727
  Serious: Yes (Other)
  Sender: FDA-Public Use
  Company Number: PHEH2005US03171

PATIENT
  Age: 42 Year
  Sex: Female

DRUGS (3)
  1. ELIDEL [Suspect]
     Indication: DERMATITIS
     Dosage: UNK, PRN
     Route: 061
     Dates: start: 20030529, end: 20050107
  2. NUTRACORT [Concomitant]
  3. ERYGEL [Concomitant]
     Dosage: UNK, BID

REACTIONS (1)
  - HODGKIN'S DISEASE NODULAR SCLEROSIS STAGE UNSPECIFIED [None]
